FAERS Safety Report 18062346 (Version 3)
Quarter: 2020Q3

REPORT INFORMATION
  Report Type: Spontaneous
  Country: GB (occurrence: GB)
  Receive Date: 20200723
  Receipt Date: 20200813
  Transmission Date: 20201103
  Serious: Yes (Other)
  Sender: FDA-Public Use
  Company Number: GB-BRISTOL-MYERS SQUIBB COMPANY-BMS-2020-057116

PATIENT
  Age: 86 Year
  Sex: Male

DRUGS (3)
  1. APIXABAN [Suspect]
     Active Substance: APIXABAN
     Indication: PRODUCT USED FOR UNKNOWN INDICATION
     Dosage: 10 MILLIGRAM, PER DAY
     Route: 065
     Dates: start: 20200519
  2. APIXABAN [Suspect]
     Active Substance: APIXABAN
     Dosage: 5 MILLIGRAM, PER DAY
     Route: 065
     Dates: start: 20200522
  3. WARFARIN [Concomitant]
     Active Substance: WARFARIN
     Indication: PULMONARY EMBOLISM
     Dosage: 3 MILLIGRAM, PER DAY (WARFARIN LIFELONG)
     Route: 065
     Dates: start: 2007, end: 20200519

REACTIONS (6)
  - Confusional state [Unknown]
  - Somnolence [Unknown]
  - Traumatic intracranial haemorrhage [Unknown]
  - COVID-19 [Unknown]
  - Depressed level of consciousness [Not Recovered/Not Resolved]
  - Product prescribing error [Unknown]

NARRATIVE: CASE EVENT DATE: 20200522
